FAERS Safety Report 10290011 (Version 2)
Quarter: 2014Q3

REPORT INFORMATION
  Report Type: Spontaneous
  Country: US (occurrence: None)
  Receive Date: 20140708
  Receipt Date: 20140722
  Transmission Date: 20150326
  Serious: Yes (Other)
  Sender: FDA-Public Use
  Company Number: 2014-US-008086

PATIENT
  Age: 33 Year
  Sex: Female
  Weight: 41.7 kg

DRUGS (3)
  1. XYREM [Suspect]
     Active Substance: SODIUM OXYBATE
     Indication: NARCOLEPSY
     Route: 048
     Dates: start: 201007, end: 2010
  2. HUMALOG [Concomitant]
     Active Substance: INSULIN LISPRO
  3. HYDROCHLOROTHIAZIDE (HYDROCHLOROTHIAZIDE) [Concomitant]
     Active Substance: HYDROCHLOROTHIAZIDE

REACTIONS (4)
  - Lymphoma [None]
  - Constipation [None]
  - Diarrhoea [None]
  - Frequent bowel movements [None]

NARRATIVE: CASE EVENT DATE: 201404
